FAERS Safety Report 16456259 (Version 1)
Quarter: 2019Q3

REPORT INFORMATION
  Report Type: Spontaneous
  Country: US (occurrence: US)
  Receive Date: 20190619
  Receipt Date: 20190619
  Transmission Date: 20191004
  Serious: No
  Sender: FDA-Public Use
  Company Number: None

PATIENT
  Age: 50 Year
  Sex: Female

DRUGS (1)
  1. ASMANEX [Suspect]
     Active Substance: MOMETASONE FUROATE
     Indication: COUGH
     Dates: start: 20190618, end: 20190619

REACTIONS (6)
  - Chest discomfort [None]
  - Insomnia [None]
  - Oropharyngeal pain [None]
  - Chest pain [None]
  - Headache [None]
  - Cough [None]

NARRATIVE: CASE EVENT DATE: 20190619
